FAERS Safety Report 9772088 (Version 1)
Quarter: 2013Q4

REPORT INFORMATION
  Report Type: Report from Study
  Country: CA (occurrence: CA)
  Receive Date: 20131219
  Receipt Date: 20131219
  Transmission Date: 20140711
  Serious: Yes (Hospitalization, Other)
  Sender: FDA-Public Use
  Company Number: CA-ABBVIE-13P-028-1180254-00

PATIENT
  Sex: Male

DRUGS (1)
  1. LUPRON DEPOT [Suspect]
     Indication: PROSTATE CANCER
     Dosage: 5 COURSES
     Route: 030
     Dates: start: 20111212

REACTIONS (5)
  - Bladder neck obstruction [Recovered/Resolved]
  - Calculus bladder [Recovered/Resolved]
  - Urine flow decreased [Unknown]
  - Dysuria [Unknown]
  - Bladder disorder [Unknown]
